FAERS Safety Report 18667685 (Version 2)
Quarter: 2021Q2

REPORT INFORMATION
  Report Type: Spontaneous
  Country: US (occurrence: US)
  Receive Date: 20201228
  Receipt Date: 20210413
  Transmission Date: 20210717
  Serious: Yes (Other)
  Sender: FDA-Public Use
  Company Number: US-GILEAD-2020-0509319

PATIENT
  Age: 56 Year
  Sex: Male
  Weight: 78.9 kg

DRUGS (20)
  1. DESCOVY [Concomitant]
     Active Substance: EMTRICITABINE\TENOFOVIR ALAFENAMIDE FUMARATE
     Indication: HIV INFECTION
  2. ISENTRESS [Concomitant]
     Active Substance: RALTEGRAVIR POTASSIUM
  3. ANDROGEL [Concomitant]
     Active Substance: TESTOSTERONE
  4. NABUMETONE. [Concomitant]
     Active Substance: NABUMETONE
  5. TERBINAFINE. [Concomitant]
     Active Substance: TERBINAFINE
  6. VALACYCLOVIR [Concomitant]
     Active Substance: VALACYCLOVIR HYDROCHLORIDE
  7. CIALIS [Concomitant]
     Active Substance: TADALAFIL
  8. PANTOPRAZOLE [Concomitant]
     Active Substance: PANTOPRAZOLE
  9. VITAMIN D3 [Concomitant]
     Active Substance: CHOLECALCIFEROL
  10. AZITHROMYCIN ANHYDROUS. [Concomitant]
     Active Substance: AZITHROMYCIN ANHYDROUS
  11. TRUVADA [Suspect]
     Active Substance: EMTRICITABINE\TENOFOVIR DISOPROXIL FUMARATE
     Indication: HIV INFECTION
     Dosage: UNK
     Route: 048
     Dates: start: 200801, end: 201611
  12. NAPROXEN. [Concomitant]
     Active Substance: NAPROXEN
  13. BIKTARVY [Concomitant]
     Active Substance: BICTEGRAVIR SODIUM\EMTRICITABINE\TENOFOVIR ALAFENAMIDE FUMARATE
     Indication: HIV INFECTION
  14. ATORVASTATIN [Concomitant]
     Active Substance: ATORVASTATIN
  15. TESTIM [Concomitant]
     Active Substance: TESTOSTERONE
  16. ACYCLOVIR. [Concomitant]
     Active Substance: ACYCLOVIR
  17. LOPERAMIDE [Concomitant]
     Active Substance: LOPERAMIDE
  18. METFORMIN [Concomitant]
     Active Substance: METFORMIN HYDROCHLORIDE
     Indication: HIV INFECTION
  19. TESTOSTERONE GEL [Concomitant]
     Active Substance: TESTOSTERONE
  20. TRIAMCINOLONE [Concomitant]
     Active Substance: TRIAMCINOLONE

REACTIONS (8)
  - Osteoporosis [Unknown]
  - Emotional distress [Not Recovered/Not Resolved]
  - Anhedonia [Not Recovered/Not Resolved]
  - Bone density decreased [Unknown]
  - Rib fracture [Unknown]
  - Osteopenia [Not Recovered/Not Resolved]
  - Anxiety [Not Recovered/Not Resolved]
  - Pain [Not Recovered/Not Resolved]

NARRATIVE: CASE EVENT DATE: 201311
